FAERS Safety Report 25115759 (Version 1)
Quarter: 2025Q1

REPORT INFORMATION
  Report Type: Spontaneous
  Country: IT (occurrence: IT)
  Receive Date: 20250325
  Receipt Date: 20250325
  Transmission Date: 20250409
  Serious: Yes (Hospitalization, Other)
  Sender: AMGEN
  Company Number: IT-AMGEN-ITASP2025054612

PATIENT

DRUGS (1)
  1. FILGRASTIM [Suspect]
     Active Substance: FILGRASTIM
     Indication: Acute myeloid leukaemia
     Dosage: 5 MICROGRAM/KILOGRAM, QD
     Route: 065
     Dates: start: 2019

REACTIONS (8)
  - Unevaluable event [Unknown]
  - Neutropenia [Unknown]
  - Febrile neutropenia [Unknown]
  - Septic shock [Unknown]
  - Acute myeloid leukaemia recurrent [Unknown]
  - Bone pain [Unknown]
  - Headache [Unknown]
  - Rash [Unknown]
